FAERS Safety Report 7912230-2 (Version None)
Quarter: 2011Q4

REPORT INFORMATION
  Report Type: 
  Country: None (occurrence: None)
  Receive Date: 20111114
  Receipt Date: 20111109
  Transmission Date: 20120403
  Serious: Yes (Disabling, Other)
  Sender: FDA-Public Use
  Company Number: US-MERCK-1103USA00941

PATIENT
  Sex: Female

DRUGS (4)
  1. FOSAMAX [Suspect]
     Indication: OSTEOPOROSIS
     Route: 048
  2. FOSAMAX [Suspect]
     Route: 048
     Dates: start: 20080101
  3. FOSAMAX [Suspect]
     Route: 048
     Dates: start: 20080101
  4. FOSAMAX [Suspect]
     Indication: OSTEOPOROSIS PROPHYLAXIS
     Route: 048

REACTIONS (3)
  - FEMUR FRACTURE [None]
  - FRACTURE [None]
  - LOW TURNOVER OSTEOPATHY [None]
